FAERS Safety Report 18879199 (Version 1)
Quarter: 2021Q1

REPORT INFORMATION
  Report Type: Spontaneous
  Country: US (occurrence: US)
  Receive Date: 20210211
  Receipt Date: 20210211
  Transmission Date: 20210420
  Serious: Yes (Other)
  Sender: FDA-Public Use
  Company Number: US-009507513-2102USA004141

PATIENT
  Sex: Male

DRUGS (1)
  1. STEGLUJAN [Suspect]
     Active Substance: ERTUGLIFLOZIN PIDOLATE\SITAGLIPTIN PHOSPHATE
     Dosage: UNK
     Route: 048

REACTIONS (3)
  - Increased appetite [Unknown]
  - Acute kidney injury [Unknown]
  - Fluid intake reduced [Unknown]
